FAERS Safety Report 8122281-3 (Version None)
Quarter: 2012Q1

REPORT INFORMATION
  Report Type: 
  Country: None (occurrence: None)
  Receive Date: 20120208
  Receipt Date: 20120203
  Transmission Date: 20120608
  Serious: Yes (Death)
  Sender: FDA-Public Use
  Company Number: US-ELI_LILLY_AND_COMPANY-US201201004364

PATIENT
  Sex: Male
  Weight: 85.261 kg

DRUGS (2)
  1. ELOXATIN [Concomitant]
     Indication: HEAD AND NECK CANCER
     Dosage: UNK
     Dates: start: 20110601
  2. GEMZAR [Suspect]
     Indication: HEAD AND NECK CANCER
     Dosage: 1800 MG, DAY 1 AND DAY 8 EVERY 21 DAYS
     Route: 042
     Dates: start: 20101014, end: 20110407

REACTIONS (2)
  - NEOPLASM MALIGNANT [None]
  - OFF LABEL USE [None]
